FAERS Safety Report 5282231-4 (Version None)
Quarter: 2007Q1

REPORT INFORMATION
  Report Type: 
  Country: None (occurrence: None)
  Receive Date: 20070330
  Receipt Date: 20070319
  Transmission Date: 20070707
  Serious: Yes (Other)
  Sender: FDA-Public Use
  Company Number: FR-PFIZER INC-2007022422

PATIENT
  Age: 38 Year
  Sex: Female

DRUGS (2)
  1. CHAMPIX [Suspect]
     Indication: SMOKING CESSATION THERAPY
  2. COUMADIN [Interacting]
     Dosage: DAILY DOSE:10MG

REACTIONS (3)
  - COAGULATION TIME PROLONGED [None]
  - DRUG INTERACTION [None]
  - HAEMATOMA [None]
